FAERS Safety Report 5204899-0 (Version None)
Quarter: 2007Q1

REPORT INFORMATION
  Report Type: 
  Country: None (occurrence: None)
  Receive Date: 20070110
  Receipt Date: 20060828
  Transmission Date: 20070707
  Serious: No
  Sender: FDA-Public Use
  Company Number: US-BRISTOL-MYERS SQUIBB COMPANY-13490354

PATIENT
  Age: 45 Year
  Sex: Female
  Weight: 94 kg

DRUGS (1)
  1. ABILIFY [Suspect]
     Indication: PSYCHOTIC DISORDER
     Dosage: PT CHANGING DOSE ON HER OWN
     Route: 048

REACTIONS (5)
  - CIRCADIAN RHYTHM SLEEP DISORDER [None]
  - FEELING ABNORMAL [None]
  - INSOMNIA [None]
  - SOMNOLENCE [None]
  - WEIGHT INCREASED [None]
